FAERS Safety Report 18250034 (Version 1)
Quarter: 2020Q3

REPORT INFORMATION
  Report Type: Spontaneous
  Country: US (occurrence: US)
  Receive Date: 20200909
  Receipt Date: 20200909
  Transmission Date: 20201103
  Serious: Yes (Hospitalization, Other)
  Sender: FDA-Public Use
  Company Number: US-APOTEX-2020AP017482

PATIENT
  Age: 47 Year
  Sex: Male

DRUGS (2)
  1. METFORMIN [Suspect]
     Active Substance: METFORMIN HYDROCHLORIDE
     Indication: PRODUCT USED FOR UNKNOWN INDICATION
     Dosage: 500 MILLIGRAM, BID
     Route: 048
  2. METFORMIN [Suspect]
     Active Substance: METFORMIN HYDROCHLORIDE
     Dosage: 70 GRAM
     Route: 048

REACTIONS (9)
  - Drug level increased [Recovered/Resolved]
  - Toxicity to various agents [Recovered/Resolved]
  - Renal tubular necrosis [Recovered/Resolved]
  - Overdose [Unknown]
  - Shock [Recovered/Resolved]
  - Acidosis [Recovered/Resolved]
  - Blood lactic acid increased [Recovered/Resolved]
  - Aspiration [Recovered/Resolved]
  - Atrial fibrillation [Recovered/Resolved]
